FAERS Safety Report 16894363 (Version 1)
Quarter: 2019Q4

REPORT INFORMATION
  Report Type: Spontaneous
  Country: GB (occurrence: GB)
  Receive Date: 20191008
  Receipt Date: 20191008
  Transmission Date: 20200122
  Serious: Yes (Other)
  Sender: FDA-Public Use
  Company Number: GB-MYLANLABS-2019M1092601

PATIENT

DRUGS (1)
  1. LAMOTRIGINE. [Suspect]
     Active Substance: LAMOTRIGINE
     Indication: DEPRESSION
     Dosage: UNK
     Route: 065
     Dates: start: 201902

REACTIONS (6)
  - Drug intolerance [Unknown]
  - Suicidal ideation [Unknown]
  - Oral pain [Unknown]
  - Drug ineffective [Unknown]
  - Dry mouth [Unknown]
  - Glossodynia [Unknown]
